FAERS Safety Report 6917625-1 (Version None)
Quarter: 2010Q3

REPORT INFORMATION
  Report Type: 
  Country: None (occurrence: None)
  Receive Date: 20100810
  Receipt Date: 20100730
  Transmission Date: 20110219
  Serious: Yes (Other)
  Sender: FDA-Public Use
  Company Number: ES-GILEAD-E2B_00000786

PATIENT
  Age: 59 Year
  Sex: Female

DRUGS (4)
  1. AMBRISENTAN [Suspect]
     Indication: PULMONARY HYPERTENSION
     Dosage: 5MG PER DAY
     Dates: start: 20100201
  2. BOSENTAN [Suspect]
     Indication: PULMONARY HYPERTENSION
  3. BOSENTAN [Suspect]
  4. PREDNISONE [Concomitant]
     Indication: SCLERODACTYLIA
     Dosage: 5MG PER DAY

REACTIONS (4)
  - ALANINE AMINOTRANSFERASE INCREASED [None]
  - ASPARTATE AMINOTRANSFERASE INCREASED [None]
  - HEPATOTOXICITY [None]
  - HYPERTRANSAMINASAEMIA [None]
